FAERS Safety Report 9381486 (Version 2)
Quarter: 2013Q3

REPORT INFORMATION
  Report Type: Spontaneous
  Country: US (occurrence: US)
  Receive Date: 20130703
  Receipt Date: 20130718
  Transmission Date: 20140515
  Serious: Yes (Other)
  Sender: FDA-Public Use
  Company Number: PHHY2013US066377

PATIENT
  Age: 58 Year
  Sex: Female

DRUGS (7)
  1. ALENDRONATE [Suspect]
     Indication: OSTEOPOROSIS
     Dates: start: 1998
  2. IBANDRONATE SODIUM [Suspect]
     Dates: start: 2006, end: 2008
  3. ZOLEDRONATE [Suspect]
     Indication: OSTEOPOROSIS
     Dosage: 5 MG, UNK
     Route: 042
     Dates: start: 200905
  4. STEROID [Suspect]
  5. ESTROGEN [Suspect]
     Indication: HORMONE REPLACEMENT THERAPY
     Dates: start: 2000, end: 2007
  6. TERIPARATIDE [Concomitant]
     Dates: start: 2003, end: 2005
  7. TRANDOLAPRIL [Concomitant]
     Indication: HYPERTENSION

REACTIONS (9)
  - Pelvic fracture [Unknown]
  - Pubis fracture [Unknown]
  - Pelvic pain [Unknown]
  - Cushingoid [Unknown]
  - Gait disturbance [Unknown]
  - Multiple fractures [Unknown]
  - Hip fracture [Unknown]
  - Femur fracture [Unknown]
  - Pathological fracture [Unknown]
